FAERS Safety Report 24271078 (Version 1)
Quarter: 2024Q3

REPORT INFORMATION
  Report Type: Spontaneous
  Country: FR (occurrence: FR)
  Receive Date: 20240831
  Receipt Date: 20240831
  Transmission Date: 20241017
  Serious: Yes (Other)
  Sender: ROCHE
  Company Number: None

PATIENT
  Age: 47 Year
  Sex: Female

DRUGS (17)
  1. AVASTIN [Suspect]
     Active Substance: BEVACIZUMAB
     Indication: Lung adenocarcinoma stage IV
     Route: 042
     Dates: start: 20230904, end: 20231031
  2. TAXOL [Suspect]
     Active Substance: PACLITAXEL
     Indication: Lung adenocarcinoma stage IV
     Route: 042
     Dates: start: 20230904, end: 20231031
  3. LUMAKRAS [Suspect]
     Active Substance: SOTORASIB
     Indication: Lung adenocarcinoma stage IV
     Route: 048
     Dates: start: 20230414, end: 202308
  4. PEMBROLIZUMAB [Suspect]
     Active Substance: PEMBROLIZUMAB
     Indication: Lung adenocarcinoma stage IV
     Route: 042
     Dates: start: 202104, end: 202303
  5. FOLIC ACID [Concomitant]
     Active Substance: FOLIC ACID
  6. LACTULOSE [Concomitant]
     Active Substance: LACTULOSE
  7. DENOSUMAB [Concomitant]
     Active Substance: DENOSUMAB
  8. GABAPENTIN [Concomitant]
     Active Substance: GABAPENTIN
  9. DEXAMETHASONE [Concomitant]
     Active Substance: DEXAMETHASONE
  10. ZINC GLUCONATE [Concomitant]
     Active Substance: ZINC GLUCONATE
  11. ACETAMINOPHEN [Concomitant]
     Active Substance: ACETAMINOPHEN
  12. AMITRIPTYLINE [Concomitant]
     Active Substance: AMITRIPTYLINE
  13. CYAMEMAZINE [Concomitant]
     Active Substance: CYAMEMAZINE
  14. OXAZEPAM [Concomitant]
     Active Substance: OXAZEPAM
  15. CALCIUM CARBONATE\CHOLECALCIFEROL [Concomitant]
     Active Substance: CALCIUM CARBONATE\CHOLECALCIFEROL
  16. INNOHEP [Concomitant]
     Active Substance: TINZAPARIN SODIUM
  17. METOPIMAZINE [Concomitant]
     Active Substance: METOPIMAZINE

REACTIONS (1)
  - Extramedullary haemopoiesis [Not Recovered/Not Resolved]

NARRATIVE: CASE EVENT DATE: 20231124
